FAERS Safety Report 21184693 (Version 2)
Quarter: 2022Q3

REPORT INFORMATION
  Report Type: Spontaneous
  Country: GB (occurrence: GB)
  Receive Date: 20220808
  Receipt Date: 20220830
  Transmission Date: 20221027
  Serious: Yes (Other)
  Sender: FDA-Public Use
  Company Number: GB-BAYER-2022A086024

PATIENT
  Age: 67 Year
  Sex: Female

DRUGS (26)
  1. AFLIBERCEPT [Suspect]
     Active Substance: AFLIBERCEPT
     Indication: Neovascular age-related macular degeneration
     Dosage: 50?L
     Dates: start: 20191113
  2. AFLIBERCEPT [Suspect]
     Active Substance: AFLIBERCEPT
     Dosage: UNK
     Dates: start: 20200113
  3. AFLIBERCEPT [Suspect]
     Active Substance: AFLIBERCEPT
     Dosage: 50?L
     Dates: start: 20201130
  4. AFLIBERCEPT [Suspect]
     Active Substance: AFLIBERCEPT
     Dosage: 50?L
     Dates: start: 20201103
  5. AFLIBERCEPT [Suspect]
     Active Substance: AFLIBERCEPT
     Dosage: UNK
     Dates: start: 20210410
  6. AFLIBERCEPT [Suspect]
     Active Substance: AFLIBERCEPT
     Dosage: UNK
     Dates: start: 20200527
  7. AFLIBERCEPT [Suspect]
     Active Substance: AFLIBERCEPT
     Dosage: UNK
     Dates: start: 20200317
  8. AFLIBERCEPT [Suspect]
     Active Substance: AFLIBERCEPT
     Dosage: UNK
     Dates: start: 20210810
  9. AFLIBERCEPT [Suspect]
     Active Substance: AFLIBERCEPT
     Dosage: 50?L
     Dates: start: 20200722
  10. AFLIBERCEPT [Suspect]
     Active Substance: AFLIBERCEPT
     Dosage: 50?L
     Dates: start: 20190902
  11. AFLIBERCEPT [Suspect]
     Active Substance: AFLIBERCEPT
     Dosage: UNK
     Dates: start: 20210518
  12. AFLIBERCEPT [Suspect]
     Active Substance: AFLIBERCEPT
     Dosage: UNK
     Dates: start: 20220526
  13. AFLIBERCEPT [Suspect]
     Active Substance: AFLIBERCEPT
     Dosage: UNK
     Dates: start: 20210224
  14. AFLIBERCEPT [Suspect]
     Active Substance: AFLIBERCEPT
     Dosage: UNK
     Dates: start: 20211104
  15. AFLIBERCEPT [Suspect]
     Active Substance: AFLIBERCEPT
     Dosage: 50?L
     Dates: start: 20210124
  16. AFLIBERCEPT [Suspect]
     Active Substance: AFLIBERCEPT
     Dosage: UNK
     Dates: start: 20210921
  17. AFLIBERCEPT [Suspect]
     Active Substance: AFLIBERCEPT
     Dosage: UNK
     Dates: start: 20220222
  18. AFLIBERCEPT [Suspect]
     Active Substance: AFLIBERCEPT
     Dosage: UNK
     Dates: start: 20211216
  19. AFLIBERCEPT [Suspect]
     Active Substance: AFLIBERCEPT
     Dosage: 50?L
     Dates: start: 20190930
  20. AFLIBERCEPT [Suspect]
     Active Substance: AFLIBERCEPT
     Dosage: UNK
     Dates: start: 20200218
  21. AFLIBERCEPT [Suspect]
     Active Substance: AFLIBERCEPT
     Dosage: 50?L
     Dates: start: 20200120
  22. AFLIBERCEPT [Suspect]
     Active Substance: AFLIBERCEPT
     Dosage: UNK
     Dates: start: 20200326
  23. AFLIBERCEPT [Suspect]
     Active Substance: AFLIBERCEPT
     Dosage: 50?L
     Dates: start: 20200915
  24. AFLIBERCEPT [Suspect]
     Active Substance: AFLIBERCEPT
     Dosage: UNK
     Dates: start: 20210629
  25. AFLIBERCEPT [Suspect]
     Active Substance: AFLIBERCEPT
     Dosage: UNK
     Dates: start: 20220413
  26. AFLIBERCEPT [Suspect]
     Active Substance: AFLIBERCEPT
     Dosage: 50?L
     Dates: start: 20220712

REACTIONS (1)
  - Neovascular age-related macular degeneration [Not Recovered/Not Resolved]

NARRATIVE: CASE EVENT DATE: 20211104
